FAERS Safety Report 6604292-X (Version None)
Quarter: 2010Q1

REPORT INFORMATION
  Report Type: 
  Country: None (occurrence: None)
  Receive Date: 20100226
  Receipt Date: 20090810
  Transmission Date: 20100710
  Serious: No
  Sender: FDA-Public Use
  Company Number: A0801350A

PATIENT
  Age: 56 Year
  Sex: Female

DRUGS (4)
  1. LAMICTAL CD [Suspect]
     Indication: DEPRESSION
     Dosage: 25MG PER DAY
     Route: 048
     Dates: start: 20090805, end: 20090807
  2. TRAZODONE HCL [Concomitant]
  3. RISPERIDONE [Concomitant]
  4. KLONOPIN [Concomitant]

REACTIONS (5)
  - CONTUSION [None]
  - DIARRHOEA [None]
  - HEADACHE [None]
  - RASH [None]
  - URTICARIA [None]
